FAERS Safety Report 10293648 (Version 2)
Quarter: 2014Q3

REPORT INFORMATION
  Report Type: Spontaneous
  Country: US (occurrence: US)
  Receive Date: 20140710
  Receipt Date: 20140710
  Transmission Date: 20150326
  Serious: No
  Sender: FDA-Public Use
  Company Number: US-PURDUE-USA-2014-0110014

PATIENT
  Age: 31 Year
  Sex: Female

DRUGS (1)
  1. BUTRANS [Suspect]
     Active Substance: BUPRENORPHINE
     Indication: AUTOIMMUNE DISORDER
     Dosage: 20 MCG/HR, WEEKLY
     Route: 062
     Dates: start: 201306

REACTIONS (6)
  - Product quality issue [Unknown]
  - Product adhesion issue [Unknown]
  - Drug ineffective [Recovered/Resolved]
  - Breakthrough pain [Unknown]
  - Wrong technique in drug usage process [Unknown]
  - Inadequate analgesia [Unknown]

NARRATIVE: CASE EVENT DATE: 20131230
